FAERS Safety Report 12461542 (Version 1)
Quarter: 2016Q2

REPORT INFORMATION
  Report Type: Report from Study
  Country: US (occurrence: US)
  Receive Date: 20160613
  Receipt Date: 20160613
  Transmission Date: 20160815
  Serious: Yes (Other)
  Sender: FDA-Public Use
  Company Number: US-UCBSA-2016021561

PATIENT
  Age: 48 Year
  Sex: Female

DRUGS (3)
  1. PAXIL [Concomitant]
     Active Substance: PAROXETINE HYDROCHLORIDE
     Indication: ANXIETY
     Dosage: UNK
  2. KEPPRA [Suspect]
     Active Substance: LEVETIRACETAM
     Indication: SEIZURE
     Dosage: UNK
  3. LACOSAMIDE. [Suspect]
     Active Substance: LACOSAMIDE
     Indication: SEIZURE
     Dosage: UNK

REACTIONS (8)
  - Crying [Unknown]
  - Knee arthroplasty [Unknown]
  - Memory impairment [Unknown]
  - Intervertebral disc protrusion [Unknown]
  - Feeling abnormal [Unknown]
  - Thinking abnormal [Unknown]
  - Arthritis [Unknown]
  - Bone pain [Unknown]
